FAERS Safety Report 5164915-1 (Version None)
Quarter: 2006Q4

REPORT INFORMATION
  Report Type: 
  Country: None (occurrence: None)
  Receive Date: 20061205
  Receipt Date: 19891020
  Transmission Date: 20070319
  Serious: Yes (Death)
  Sender: FDA-Public Use
  Company Number: GB-ELI_LILLY_AND_COMPANY-US89103610A

PATIENT
  Age: 47 Year
  Sex: Male

DRUGS (4)
  1. PROZAC [Suspect]
     Indication: DEPRESSION
     Dosage: 20 MG, UNKNOWN
     Route: 048
     Dates: start: 19890810, end: 19890911
  2. LITHIUM CARBONATE [Concomitant]
     Dosage: UNK, 3/D
  3. TRAZODONE HCL [Concomitant]
     Dosage: UNK, OTHER
  4. TEMAZEPAM [Concomitant]
     Dosage: UNK, UNKNOWN

REACTIONS (7)
  - AGGRESSION [None]
  - AGITATION [None]
  - FATIGUE [None]
  - HOMICIDE [None]
  - INSOMNIA [None]
  - SUICIDE ATTEMPT [None]
  - TANGENTIALITY [None]
